FAERS Safety Report 20658504 (Version 1)
Quarter: 2022Q1

REPORT INFORMATION
  Report Type: Spontaneous
  Country: FR (occurrence: FR)
  Receive Date: 20220331
  Receipt Date: 20220331
  Transmission Date: 20220423
  Serious: Yes (Hospitalization, Congenital Anomaly, Other)
  Sender: FDA-Public Use
  Company Number: FR-ABBVIE-22K-056-4339973-00

PATIENT
  Sex: Male

DRUGS (2)
  1. VALPROATE SODIUM [Suspect]
     Active Substance: VALPROATE SODIUM
     Indication: Maternal exposure timing unspecified
     Route: 064
  2. FOLIC ACID [Concomitant]
     Active Substance: FOLIC ACID
     Indication: Product used for unknown indication

REACTIONS (21)
  - Polydactyly [Unknown]
  - Epilepsy [Unknown]
  - Aggression [Unknown]
  - Behaviour disorder [Unknown]
  - Seizure [Unknown]
  - Foetal anticonvulsant syndrome [Unknown]
  - Psychomotor retardation [Unknown]
  - Speech disorder developmental [Unknown]
  - Encephalopathy [Unknown]
  - Dysmorphism [Unknown]
  - Scoliosis [Unknown]
  - Behaviour disorder [Unknown]
  - Intellectual disability [Unknown]
  - Microcephaly [Unknown]
  - Learning disorder [Unknown]
  - Dyspraxia [Unknown]
  - Psychomotor skills impaired [Unknown]
  - Strabismus [Unknown]
  - Ear, nose and throat disorder [Unknown]
  - Enuresis [Unknown]
  - Foetal exposure during pregnancy [Unknown]

NARRATIVE: CASE EVENT DATE: 19981228
